FAERS Safety Report 16055513 (Version 1)
Quarter: 2019Q1

REPORT INFORMATION
  Report Type: Spontaneous
  Country: US (occurrence: US)
  Receive Date: 20190208
  Receipt Date: 20190208
  Transmission Date: 20190418
  Serious: Yes (Disabling, Other)
  Sender: FDA-Public Use
  Company Number: None

PATIENT
  Sex: Male
  Weight: 170 kg

DRUGS (1)
  1. TORADOL [Suspect]
     Active Substance: KETOROLAC TROMETHAMINE
     Indication: SWELLING

REACTIONS (9)
  - Headache [None]
  - Pain [None]
  - Dizziness [None]
  - Asthenia [None]
  - Abdominal pain [None]
  - Feeding disorder [None]
  - Malaise [None]
  - Laryngeal disorder [None]
  - Nausea [None]
